FAERS Safety Report 21066284 (Version 1)
Quarter: 2022Q3

REPORT INFORMATION
  Report Type: Spontaneous
  Country: US (occurrence: US)
  Receive Date: 20220711
  Receipt Date: 20220711
  Transmission Date: 20221027
  Serious: No
  Sender: FDA-Public Use
  Company Number: US-INTRA-CELLULAR THERAPIES, INC.-2022ICT00299

PATIENT
  Age: 55 Year
  Sex: Female
  Weight: 68.934 kg

DRUGS (5)
  1. CAPLYTA [Suspect]
     Active Substance: LUMATEPERONE
     Indication: Bipolar disorder
     Dosage: 1 CAPSULE, 42 MG, ONE DOSE
     Dates: start: 20220126, end: 20220126
  2. CAPLYTA [Suspect]
     Active Substance: LUMATEPERONE
     Indication: Bipolar I disorder
  3. ROSUVASTATIN [Suspect]
     Active Substance: ROSUVASTATIN
     Indication: Blood cholesterol increased
     Dosage: UNK
     Dates: end: 2022
  4. LITHIUM [Concomitant]
     Active Substance: LITHIUM
  5. OXCARBAZEPINE [Concomitant]
     Active Substance: OXCARBAZEPINE

REACTIONS (9)
  - Feeling cold [Recovering/Resolving]
  - Nasal congestion [Recovered/Resolved]
  - Dyspnoea [Recovered/Resolved]
  - Initial insomnia [Recovered/Resolved]
  - Peripheral coldness [Recovering/Resolving]
  - Cold-stimulus headache [Recovering/Resolving]
  - Malaise [Recovered/Resolved]
  - Dysstasia [Recovered/Resolved]
  - Headache [Recovered/Resolved]

NARRATIVE: CASE EVENT DATE: 20220126
